FAERS Safety Report 5601731-8 (Version None)
Quarter: 2008Q1

REPORT INFORMATION
  Report Type: 
  Country: None (occurrence: None)
  Receive Date: 20080124
  Receipt Date: 20080116
  Transmission Date: 20080703
  Serious: Yes (Hospitalization)
  Sender: FDA-Public Use
  Company Number: DE-ABBOTT-08P-062-0433770-00

PATIENT
  Sex: Female
  Weight: 52 kg

DRUGS (9)
  1. HUMIRA [Suspect]
     Indication: PSORIATIC ARTHROPATHY
     Route: 058
     Dates: start: 20060901, end: 20071201
  2. CORTISONE [Concomitant]
     Indication: PSORIATIC ARTHROPATHY
  3. NAPROXEN [Concomitant]
     Indication: PSORIATIC ARTHROPATHY
     Dates: start: 20050701
  4. METHOTREXATE [Concomitant]
     Indication: PSORIATIC ARTHROPATHY
     Dates: start: 20050725
  5. OMEPRAZOLE [Concomitant]
     Indication: DRUG USE FOR UNKNOWN INDICATION
  6. CA++ [Concomitant]
     Indication: DRUG USE FOR UNKNOWN INDICATION
  7. OPIPRAMOL [Concomitant]
     Indication: DRUG USE FOR UNKNOWN INDICATION
  8. CLINDAMYCIN HCL [Concomitant]
     Indication: DRUG USE FOR UNKNOWN INDICATION
  9. FE++ [Concomitant]
     Indication: IRON DEFICIENCY ANAEMIA

REACTIONS (4)
  - IRON DEFICIENCY ANAEMIA [None]
  - LOCAL SWELLING [None]
  - NEOPLASM SKIN [None]
  - THROMBOCYTOPENIA [None]
